FAERS Safety Report 9099655 (Version 1)
Quarter: 2013Q1

REPORT INFORMATION
  Report Type: Spontaneous
  Country: KR (occurrence: KR)
  Receive Date: 20130214
  Receipt Date: 20130214
  Transmission Date: 20140127
  Serious: Yes (Other)
  Sender: FDA-Public Use
  Company Number: KR-ROCHE-1188891

PATIENT
  Age: 24 Year
  Sex: Male

DRUGS (6)
  1. BEVACIZUMAB [Suspect]
     Indication: RETINAL VASCULAR OCCLUSION
     Route: 050
  2. BEVACIZUMAB [Suspect]
     Indication: MACULAR ISCHAEMIA
  3. TRIAMCINOLONE [Concomitant]
     Route: 065
  4. CYCLOSPORINE [Concomitant]
     Route: 065
  5. ASPIRIN [Concomitant]
     Route: 065
  6. CYCLOPHOSPHAMIDE [Concomitant]
     Route: 042

REACTIONS (3)
  - Neovascularisation [Unknown]
  - Retinal neovascularisation [Unknown]
  - Vitreous haemorrhage [Unknown]
